FAERS Safety Report 19401868 (Version 3)
Quarter: 2021Q2

REPORT INFORMATION
  Report Type: Spontaneous
  Country: US (occurrence: US)
  Receive Date: 20210610
  Receipt Date: 20210629
  Transmission Date: 20210717
  Serious: No
  Sender: FDA-Public Use
  Company Number: US-PFIZER INC-2021184202

PATIENT
  Age: 78 Year
  Sex: Female
  Weight: 44.44 kg

DRUGS (1)
  1. ESTRING [Suspect]
     Active Substance: ESTRADIOL
     Indication: SEXUALLY ACTIVE
     Dosage: 2 MG, EVERY 3 MONTHS (FOLD RING IN HALF AND INSERT BEHIND THE UTERUS)
     Route: 067
     Dates: start: 20210218

REACTIONS (5)
  - Infection [Unknown]
  - Device difficult to use [Unknown]
  - Wrong technique in device usage process [Unknown]
  - Off label use [Unknown]
  - Pain [Unknown]
